FAERS Safety Report 12927890 (Version 2)
Quarter: 2016Q4

REPORT INFORMATION
  Report Type: Spontaneous
  Country: US (occurrence: US)
  Receive Date: 20161110
  Receipt Date: 20161128
  Transmission Date: 20170207
  Serious: Yes (Hospitalization)
  Sender: FDA-Public Use
  Company Number: US-TAIHO ONCOLOGY INC-EU-2016-02872

PATIENT
  Age: 78 Year
  Sex: Male
  Weight: 74.91 kg

DRUGS (19)
  1. IMDUR [Concomitant]
     Active Substance: ISOSORBIDE MONONITRATE
     Dosage: NI
  2. LONSURF [Suspect]
     Active Substance: TIPIRACIL HYDROCHLORIDE\TRIFLURIDINE
     Indication: COLON CANCER
     Route: 048
     Dates: start: 20160614, end: 2016
  3. CALCIUM CARBONATE. [Concomitant]
     Active Substance: CALCIUM CARBONATE
     Dosage: NI
  4. SENOKOT [Concomitant]
     Active Substance: SENNOSIDES
     Dosage: NI
  5. PROZAC [Concomitant]
     Active Substance: FLUOXETINE HYDROCHLORIDE
     Dosage: NI
  6. PRILOSEC [Concomitant]
     Active Substance: OMEPRAZOLE MAGNESIUM
     Dosage: NI
  7. VENTOLIN [Concomitant]
     Active Substance: ALBUTEROL SULFATE
     Dosage: NI
  8. CARDURA [Concomitant]
     Active Substance: DOXAZOSIN MESYLATE
     Dosage: NI
  9. COMPAZINE [Concomitant]
     Active Substance: PROCHLORPERAZINE MALEATE
     Dosage: NI
  10. COLACE [Concomitant]
     Active Substance: DOCUSATE SODIUM
     Dosage: NI
  11. REMERON [Concomitant]
     Active Substance: MIRTAZAPINE
     Dosage: NI
  12. HEPARIN [Concomitant]
     Active Substance: HEPARIN SODIUM
     Dosage: NI
  13. PRAVASTATIN. [Concomitant]
     Active Substance: PRAVASTATIN
     Dosage: NI
  14. ROXICODONE [Concomitant]
     Active Substance: OXYCODONE HYDROCHLORIDE
     Dosage: NI
  15. TRADJENTA [Concomitant]
     Active Substance: LINAGLIPTIN
     Indication: TYPE 2 DIABETES MELLITUS
     Dosage: NI
  16. ZOFRAN [Concomitant]
     Active Substance: ONDANSETRON HYDROCHLORIDE
     Dosage: NI
  17. EMLA [Concomitant]
     Active Substance: LIDOCAINE\PRILOCAINE
     Dosage: NI
  18. MAG-OX [Concomitant]
     Active Substance: MAGNESIUM OXIDE
     Dosage: NI
  19. GLUCOTROL [Concomitant]
     Active Substance: GLIPIZIDE
     Dosage: NI

REACTIONS (9)
  - Pollakiuria [Unknown]
  - Abdominal pain lower [Unknown]
  - Gingival pain [Unknown]
  - Blood count abnormal [Unknown]
  - Diarrhoea [Unknown]
  - Choking sensation [Unknown]
  - Mouth swelling [Unknown]
  - Oral pain [Unknown]
  - Chest pain [Unknown]

NARRATIVE: CASE EVENT DATE: 20161031
